FAERS Safety Report 13635319 (Version 1)
Quarter: 2017Q2

REPORT INFORMATION
  Report Type: Spontaneous
  Country: US (occurrence: US)
  Receive Date: 20170531
  Receipt Date: 20170531
  Transmission Date: 20170830
  Serious: Yes (Other)
  Sender: FDA-Public Use
  Company Number: US-ASTELLAS-1700077

PATIENT
  Sex: Male

DRUGS (13)
  1. ASPIRIN. [Concomitant]
     Active Substance: ASPIRIN
  2. KEFLEX [Concomitant]
     Active Substance: CEPHALEXIN
  3. POLYTRIM [Concomitant]
     Active Substance: POLYMYXIN B SULFATE\TRIMETHOPRIM SULFATE
     Dosage: EYE GTTS
     Route: 065
  4. DUREZOL [Concomitant]
     Active Substance: DIFLUPREDNATE
     Dosage: EYE GTTS
     Route: 065
  5. TARCEVA [Suspect]
     Active Substance: ERLOTINIB HYDROCHLORIDE
     Indication: LUNG NEOPLASM MALIGNANT
     Route: 048
     Dates: start: 20160108
  6. TRIAMCINOLONE [Concomitant]
     Active Substance: TRIAMCINOLONE
     Route: 065
  7. MUCINEX D [Concomitant]
     Active Substance: GUAIFENESIN\PSEUDOEPHEDRINE HYDROCHLORIDE
  8. FLONASE (UNITED STATES) [Concomitant]
  9. TARCEVA [Suspect]
     Active Substance: ERLOTINIB HYDROCHLORIDE
     Route: 048
     Dates: start: 20160210
  10. SINGULAIR [Concomitant]
     Active Substance: MONTELUKAST SODIUM
  11. TARCEVA [Suspect]
     Active Substance: ERLOTINIB HYDROCHLORIDE
     Route: 048
     Dates: start: 20160212
  12. TARCEVA [Suspect]
     Active Substance: ERLOTINIB HYDROCHLORIDE
     Route: 048
     Dates: start: 20160109
  13. MEGACE [Concomitant]
     Active Substance: MEGESTROL ACETATE

REACTIONS (18)
  - Neoplasm progression [Unknown]
  - Onychomadesis [Unknown]
  - Hepatitis A [Unknown]
  - Gout [Unknown]
  - Sinusitis [Unknown]
  - Drug ineffective [Unknown]
  - Dehydration [Unknown]
  - Nail discolouration [Unknown]
  - Rash [Unknown]
  - Nail infection [Unknown]
  - Skin disorder [Unknown]
  - Bronchitis [Unknown]
  - Decreased appetite [Unknown]
  - Dysgeusia [Unknown]
  - Hair texture abnormal [Unknown]
  - Herpes zoster [Recovering/Resolving]
  - Pruritus [Unknown]
  - Muscle spasms [Unknown]
